FAERS Safety Report 24116462 (Version 1)
Quarter: 2024Q3

REPORT INFORMATION
  Report Type: Spontaneous
  Country: EG (occurrence: EG)
  Receive Date: 20240722
  Receipt Date: 20240722
  Transmission Date: 20241017
  Serious: Yes (Hospitalization)
  Sender: OXFORD PHARMACEUTICALS
  Company Number: EG-Oxford Pharmaceuticals, LLC-2159410

PATIENT
  Age: 58 Year
  Sex: Male

DRUGS (2)
  1. TRAZODONE HYDROCHLORIDE [Suspect]
     Active Substance: TRAZODONE HYDROCHLORIDE
     Indication: Sleep disorder
  2. LOSARTAN [Concomitant]
     Active Substance: LOSARTAN

REACTIONS (3)
  - Parkinsonism [Recovered/Resolved]
  - Intentional product use issue [Unknown]
  - Drug interaction [Unknown]
